FAERS Safety Report 8512639-2 (Version None)
Quarter: 2012Q3

REPORT INFORMATION
  Report Type: 
  Country: None (occurrence: None)
  Receive Date: 20120716
  Receipt Date: 20120711
  Transmission Date: 20120928
  Serious: Yes (Death, Hospitalization)
  Sender: FDA-Public Use
  Company Number: CA-CELGENEUS-163-21880-12063791

PATIENT
  Sex: Male
  Weight: 68.9 kg

DRUGS (11)
  1. GABAPENTIN [Concomitant]
     Dosage: 100 MILLIGRAM
     Route: 048
  2. METOPROLOL TARTRATE [Concomitant]
     Indication: HEART RATE IRREGULAR
     Dosage: 25 MILLIGRAM
     Route: 048
  3. ACYCLOVIR [Concomitant]
     Dosage: 400 MILLIGRAM
     Route: 048
  4. SEVELAMER [Concomitant]
     Dosage: 1.6 GRAM
     Route: 048
  5. COMBIGAN [Concomitant]
     Dosage: BOTH EYES
     Route: 047
  6. DEXAMETHASONE [Suspect]
     Indication: MULTIPLE MYELOMA
     Dosage: 40 MILLIGRAM
     Route: 048
     Dates: start: 20120406
  7. AMIODARONE HCL [Concomitant]
     Indication: HEART RATE IRREGULAR
     Dosage: 200 MILLIGRAM
     Route: 048
  8. REVLIMID [Suspect]
     Indication: MULTIPLE MYELOMA
     Dosage: 10 MILLIGRAM
     Route: 048
     Dates: start: 20120406
  9. REVLIMID [Suspect]
     Dosage: 5 MILLIGRAM
     Route: 048
     Dates: start: 20120420
  10. VANCOMYCIN [Concomitant]
     Indication: PNEUMONIA
     Route: 065
     Dates: start: 20120601
  11. LUMIGAN [Concomitant]
     Dosage: BOTH EYES
     Route: 047

REACTIONS (4)
  - LUNG INFECTION [None]
  - MUSCULAR WEAKNESS [None]
  - SEPSIS [None]
  - MULTI-ORGAN FAILURE [None]
